FAERS Safety Report 9924325 (Version 2)
Quarter: 2015Q4

REPORT INFORMATION
  Report Type: Report from Study
  Country: US (occurrence: US)
  Receive Date: 20140226
  Receipt Date: 20151110
  Transmission Date: 20160305
  Serious: Yes (Other)
  Sender: FDA-Public Use
  Company Number: US-ROCHE-1330206

PATIENT
  Age: 79 Year
  Sex: Female

DRUGS (13)
  1. POVIDONE [Concomitant]
     Active Substance: POVIDONE
     Route: 065
  2. PHENYLEPHRINE EYE DROPS [Concomitant]
     Dosage: BOTH EYE
     Route: 065
  3. VITAMIN D2 [Concomitant]
     Active Substance: ERGOCALCIFEROL
     Route: 065
  4. LUCENTIS [Suspect]
     Active Substance: RANIBIZUMAB
     Indication: AGE-RELATED MACULAR DEGENERATION
     Route: 050
     Dates: start: 20130104
  5. AKTEN [Concomitant]
     Active Substance: LIDOCAINE HYDROCHLORIDE
     Route: 065
  6. SYSTANE (HYPROMELLOSE 2910 (4000 MPA.S)) [Concomitant]
     Active Substance: HYPROMELLOSE 2910 (4000 MPA.S)
  7. TROPICAMIDE EYE DROPS [Concomitant]
     Route: 065
  8. VITAMIN C [Concomitant]
     Active Substance: ASCORBIC ACID
  9. LUCENTIS [Suspect]
     Active Substance: RANIBIZUMAB
     Indication: NEOVASCULAR AGE-RELATED MACULAR DEGENERATION
     Dosage: ON 29/OCT/2010, 20/DEC/2010, 15/MAR/2011, 06/SEP/2011 AND 27/NOV/2012 RECEIVED RANIBIZUMAB FOR LEFT
     Route: 050
     Dates: start: 20100330
  10. AVASTIN [Suspect]
     Active Substance: BEVACIZUMAB
     Indication: NEOVASCULAR AGE-RELATED MACULAR DEGENERATION
     Dosage: ON 16/MAR/2010, HE RECEIVED NEXT DOSE OF BEVACIZUMAB
     Route: 050
     Dates: start: 20100113
  11. ASPIRIN. [Concomitant]
     Active Substance: ASPIRIN
     Route: 065
  12. LISINOPRIL. [Concomitant]
     Active Substance: LISINOPRIL
  13. METOPROLOL TARTRATE. [Concomitant]
     Active Substance: METOPROLOL TARTRATE

REACTIONS (15)
  - Vision blurred [Unknown]
  - Visual acuity reduced [Unknown]
  - Hypertension [Unknown]
  - Blepharoplasty [Unknown]
  - Visual impairment [Unknown]
  - Vocal cord polyp [Unknown]
  - Visual field defect [Unknown]
  - Off label use [Unknown]
  - Menorrhagia [Unknown]
  - Basal cell carcinoma [Unknown]
  - Photopsia [Unknown]
  - Cataract [Unknown]
  - Hypercholesterolaemia [Unknown]
  - Polymenorrhoea [Unknown]
  - Posterior capsule opacification [Unknown]

NARRATIVE: CASE EVENT DATE: 20130104
